FAERS Safety Report 5755636-2 (Version None)
Quarter: 2008Q2

REPORT INFORMATION
  Report Type: 
  Country: None (occurrence: None)
  Receive Date: 20080530
  Receipt Date: 20080530
  Transmission Date: 20081010
  Serious: Yes (Life-Threatening, Hospitalization, Other)
  Sender: FDA-Public Use
  Company Number: None

PATIENT
  Sex: Female
  Weight: 102.9665 kg

DRUGS (4)
  1. LYRICA [Suspect]
     Indication: FIBROMYALGIA
     Dosage: 150 MG TWICE DAILY PO
     Route: 048
     Dates: start: 20080101, end: 20080601
  2. CYMBALTA [Concomitant]
  3. CYCLOBENZAPRINE HCL [Concomitant]
  4. TRAMADOL HCL [Concomitant]

REACTIONS (2)
  - HYPERTENSION [None]
  - WEIGHT INCREASED [None]
